FAERS Safety Report 5883344-6 (Version None)
Quarter: 2008Q3

REPORT INFORMATION
  Report Type: 
  Country: None (occurrence: None)
  Receive Date: 20080910
  Receipt Date: 20080904
  Transmission Date: 20090109
  Serious: Yes (Death)
  Sender: FDA-Public Use
  Company Number: 2008JP004024

PATIENT
  Age: 19 Year
  Sex: Male

DRUGS (3)
  1. PROGRAF [Suspect]
     Dosage: IV DRIP
     Route: 041
     Dates: start: 20080827
  2. MILLISROL(GYCERYL TRINITRATE) INJECTION [Suspect]
     Dosage: IV NOS
     Route: 042
  3. DIPRIVAN [Suspect]
     Dosage: IV NOS
     Route: 042

REACTIONS (1)
  - CARDIAC FAILURE [None]
